FAERS Safety Report 10167635 (Version 1)
Quarter: 2014Q2

REPORT INFORMATION
  Report Type: Spontaneous
  Country: US (occurrence: US)
  Receive Date: 20140512
  Receipt Date: 20140512
  Transmission Date: 20141212
  Serious: Yes (Other)
  Sender: FDA-Public Use
  Company Number: US-BRISTOL-MYERS SQUIBB COMPANY-20701421

PATIENT
  Sex: Female

DRUGS (1)
  1. ABILIFY TABS [Suspect]
     Dosage: 1 DF= HALF A TABLET

REACTIONS (4)
  - Delusion [Unknown]
  - Wrong technique in drug usage process [Unknown]
  - Dizziness [Unknown]
  - Depression [Unknown]
